FAERS Safety Report 7809901 (Version 2)
Quarter: 2019Q3

REPORT INFORMATION
  Report Type: Spontaneous
  Country: FR (occurrence: FR)
  Receive Date: 20110211
  Receipt Date: 20190802
  Transmission Date: 20191005
  Serious: Yes (Other)
  Sender: FDA-Public Use
  Company Number: FR-AMGEN-FRASP2011006762

PATIENT
  Age: 68 Year
  Sex: Male

DRUGS (1)
  1. NPLATE [Suspect]
     Active Substance: ROMIPLOSTIM
     Indication: MYELODYSPLASTIC SYNDROME
     Dosage: 5 MICROGRAM/KILOGRAM, QWK
     Route: 065
     Dates: start: 20101102, end: 201101

REACTIONS (2)
  - Therapeutic response decreased [Unknown]
  - Dizziness [Not Recovered/Not Resolved]
